FAERS Safety Report 13858448 (Version 9)
Quarter: 2018Q1

REPORT INFORMATION
  Report Type: Spontaneous
  Country: US (occurrence: US)
  Receive Date: 20170811
  Receipt Date: 20180305
  Transmission Date: 20180508
  Serious: Yes (Hospitalization, Other)
  Sender: FDA-Public Use
  Company Number: US-INCYTE CORPORATION-2017IN006273

PATIENT

DRUGS (5)
  1. JAKAFI [Suspect]
     Active Substance: RUXOLITINIB
     Dosage: 5 MG, BID
     Route: 048
     Dates: start: 201707
  2. JAKAFI [Suspect]
     Active Substance: RUXOLITINIB
     Indication: MYELOFIBROSIS
     Dosage: 20 MG, BID
     Route: 048
     Dates: start: 20170707, end: 201707
  3. JAKAFI [Suspect]
     Active Substance: RUXOLITINIB
     Dosage: 5 MG, BID
     Dates: start: 20170804
  4. JAKAFI [Suspect]
     Active Substance: RUXOLITINIB
     Dosage: 10 MG, BID
     Dates: start: 20170809, end: 20170901
  5. JAKAFI [Suspect]
     Active Substance: RUXOLITINIB
     Dosage: 5 MG, BID
     Dates: start: 20170901

REACTIONS (15)
  - Pneumonia [Recovering/Resolving]
  - Intentional product misuse [Unknown]
  - Scab [Recovering/Resolving]
  - Rash [Recovering/Resolving]
  - Tremor [Unknown]
  - Fatigue [Unknown]
  - Haemoglobin decreased [Recovering/Resolving]
  - White blood cell count decreased [Recovering/Resolving]
  - Bone pain [Unknown]
  - Epistaxis [Recovered/Resolved]
  - Headache [Unknown]
  - Acne [Recovering/Resolving]
  - Hypotension [Unknown]
  - Chills [Unknown]
  - Platelet count decreased [Recovering/Resolving]

NARRATIVE: CASE EVENT DATE: 20170809
